FAERS Safety Report 23154946 (Version 1)
Quarter: 2023Q4

REPORT INFORMATION
  Report Type: Report from Study
  Country: US (occurrence: US)
  Receive Date: 20231107
  Receipt Date: 20231107
  Transmission Date: 20240110
  Serious: Yes (Hospitalization, Other)
  Sender: FDA-Public Use
  Company Number: US-SHIRE-US201729808

PATIENT
  Age: 31 Year
  Sex: Male

DRUGS (3)
  1. IDURSULFASE [Suspect]
     Active Substance: IDURSULFASE
     Indication: Mucopolysaccharidosis II
     Dosage: 6 DOSAGE FORM, 1/WEEK
     Route: 042
     Dates: start: 20080919
  2. IDURSULFASE [Suspect]
     Active Substance: IDURSULFASE
     Dosage: UNK
     Route: 042
  3. IDURSULFASE [Suspect]
     Active Substance: IDURSULFASE
     Dosage: 30 INTERNATIONAL UNIT, 1/WEEK
     Route: 042

REACTIONS (5)
  - COVID-19 pneumonia [Unknown]
  - Chronic obstructive pulmonary disease [Unknown]
  - COVID-19 [Recovering/Resolving]
  - Obstructive airways disorder [Unknown]
  - Nasopharyngitis [Recovering/Resolving]

NARRATIVE: CASE EVENT DATE: 20171106
